FAERS Safety Report 14342150 (Version 1)
Quarter: 2018Q1

REPORT INFORMATION
  Report Type: Spontaneous
  Country: US (occurrence: US)
  Receive Date: 20180102
  Receipt Date: 20180102
  Transmission Date: 20180509
  Serious: No
  Sender: FDA-Public Use
  Company Number: US-TEVA-758702ACC

PATIENT
  Age: 76 Year
  Sex: Female

DRUGS (2)
  1. MINOXIDIL. [Suspect]
     Active Substance: MINOXIDIL
     Indication: ALOPECIA
     Dosage: TOPICAL SOLUTION, YEARS AGO
     Dates: start: 20170323
  2. MINOXIDIL. [Suspect]
     Active Substance: MINOXIDIL
     Dosage: TOPICAL SOLUTION

REACTIONS (1)
  - Alopecia [Unknown]

NARRATIVE: CASE EVENT DATE: 20170323
